FAERS Safety Report 4450437-X (Version None)
Quarter: 2004Q3

REPORT INFORMATION
  Report Type: 
  Country: None (occurrence: None)
  Receive Date: 20040914
  Receipt Date: 20040109
  Transmission Date: 20050211
  Serious: Yes (Other)
  Sender: FDA-Public Use
  Company Number: FR 2004 0071

PATIENT
  Sex: Female

DRUGS (1)
  1. DOTAREM -MEGLUMINE GADOTERATE (DOTAREM) [Suspect]
     Dates: start: 20040830, end: 20040830

REACTIONS (2)
  - SHOCK [None]
  - SYNCOPE VASOVAGAL [None]
